FAERS Safety Report 9723026 (Version 1)
Quarter: 2013Q4

REPORT INFORMATION
  Report Type: Spontaneous
  Country: US (occurrence: None)
  Receive Date: 20131127
  Receipt Date: 20131127
  Transmission Date: 20140711
  Serious: Yes (Hospitalization)
  Sender: FDA-Public Use
  Company Number: None

PATIENT
  Age: 77 Year
  Sex: Male
  Weight: 132.9 kg

DRUGS (9)
  1. OXALIPLATIN [Suspect]
     Indication: CHEMOTHERAPY
     Dates: start: 20131008, end: 20131022
  2. VENLAFAXINE [Suspect]
     Indication: NEUROPATHY PERIPHERAL
     Route: 048
     Dates: start: 20131022, end: 20131122
  3. ACETAMINOPHEN [Concomitant]
  4. CALCIUM CARBONATE ANTACID TABLETS [Concomitant]
  5. TRAMADOL [Concomitant]
  6. ALLOPURINOL [Concomitant]
  7. SIMVASTATIN [Concomitant]
  8. IRON SULFATE [Concomitant]
  9. XARELTO [Concomitant]

REACTIONS (3)
  - Haematoma [None]
  - Fall [None]
  - Haemoglobin decreased [None]
